FAERS Safety Report 9606930 (Version 2)
Quarter: 2013Q4

REPORT INFORMATION
  Report Type: Spontaneous
  Country: US (occurrence: US)
  Receive Date: 20131008
  Receipt Date: 20131008
  Transmission Date: 20140711
  Serious: No
  Sender: FDA-Public Use
  Company Number: US-AMGEN-USASP2013058948

PATIENT
  Age: 75 Year
  Sex: Female
  Weight: 68.03 kg

DRUGS (6)
  1. PROLIA [Suspect]
     Indication: OSTEOPOROSIS
     Dosage: 60 MG, Q6MO
     Route: 058
     Dates: start: 20120605
  2. PROLIA [Suspect]
     Dosage: UNK
     Route: 058
  3. PROLIA [Suspect]
     Dosage: UNK
     Route: 058
  4. MODURETIC [Concomitant]
     Indication: HYPERTENSION
     Dosage: 5/50 MG, QD
     Route: 048
     Dates: start: 2008
  5. CLARINEX                           /01202601/ [Concomitant]
     Indication: HYPERSENSITIVITY
     Dosage: 5 MG, QD
     Route: 048
     Dates: start: 2008
  6. VITAMIN D2 + CALCIUM               /00202201/ [Concomitant]
     Dosage: 600MG/400UNIT, QD
     Route: 048
     Dates: start: 2008

REACTIONS (2)
  - Alopecia [Not Recovered/Not Resolved]
  - Onychoclasis [Not Recovered/Not Resolved]
